FAERS Safety Report 19361986 (Version 4)
Quarter: 2021Q2

REPORT INFORMATION
  Report Type: Report from Study
  Country: None (occurrence: TR)
  Receive Date: 20210603
  Receipt Date: 20210619
  Transmission Date: 20210717
  Serious: Yes (Hospitalization)
  Sender: FDA-Public Use
  Company Number: TR-ABBVIE-21K-161-3929232-00

PATIENT
  Age: 69 Year
  Sex: Male
  Weight: 85 kg

DRUGS (8)
  1. ECOPIRIN [Concomitant]
     Active Substance: ASPIRIN
     Indication: VASCULAR OCCLUSION
     Route: 048
     Dates: end: 20210525
  2. OKSAPAR [Concomitant]
     Indication: VASCULAR OCCLUSION
     Route: 058
     Dates: start: 20210525, end: 20210527
  3. MADOPAR HBS [Concomitant]
     Active Substance: BENSERAZIDE HYDROCHLORIDE\LEVODOPA
     Indication: PARKINSON^S DISEASE
     Route: 048
  4. ATOR [Concomitant]
     Active Substance: ATORVASTATIN CALCIUM
     Indication: BLOOD CHOLESTEROL INCREASED
     Route: 048
  5. DUODOPA [Suspect]
     Active Substance: CARBIDOPA\LEVODOPA
     Dosage: MORNING DOSE (ML): 6.00 CONTINUOUS DOSE (ML): 2.50 EXTRA DOSE?(ML): 1.00
     Route: 050
     Dates: start: 20210530, end: 20210602
  6. DUODOPA [Suspect]
     Active Substance: CARBIDOPA\LEVODOPA
     Dosage: MORNING DOSE (ML): 6.00 CONTINUOUS DOSE (ML): 3.30 EXTRA DOSE(ML): 1.00
     Route: 050
     Dates: start: 20210608
  7. DUODOPA [Suspect]
     Active Substance: CARBIDOPA\LEVODOPA
     Dosage: MORNING DOSE (ML): 6.00 CONTINIOUS DOSE (ML): 2.70 EXTRA DOSE (ML): 1.00
     Route: 050
     Dates: start: 20210602, end: 20210608
  8. DUODOPA [Suspect]
     Active Substance: CARBIDOPA\LEVODOPA
     Indication: PARKINSON^S DISEASE
     Dosage: MORNING DOSE (ML): 6.00 CONTINIOUS DOSE (ML): 2.50 EXTRA DOSE (ML): 1.00
     Route: 050
     Dates: start: 20210526, end: 20210528

REACTIONS (12)
  - Tachypnoea [Recovered/Resolved]
  - Oxygen saturation decreased [Recovered/Resolved]
  - Melaena [Recovered/Resolved]
  - Hypophagia [Recovered/Resolved]
  - Genital discomfort [Recovered/Resolved]
  - Stoma site haemorrhage [Recovered/Resolved]
  - Abdominal pain upper [Recovered/Resolved]
  - Intra-abdominal haemorrhage [Recovered/Resolved]
  - Haemorrhage subcutaneous [Recovered/Resolved]
  - Hallucination [Recovered/Resolved]
  - Pneumonia [Recovered/Resolved]
  - Bradykinesia [Recovered/Resolved]

NARRATIVE: CASE EVENT DATE: 20210528
